FAERS Safety Report 26087845 (Version 1)
Quarter: 2025Q4

REPORT INFORMATION
  Report Type: Report from Study
  Country: IN (occurrence: IN)
  Receive Date: 20251125
  Receipt Date: 20251125
  Transmission Date: 20260118
  Serious: Yes (Other)
  Sender: ELI LILLY AND COMPANY
  Company Number: IN-ELI_LILLY_AND_COMPANY-IN202511027846

PATIENT
  Age: 74 Year
  Sex: Female
  Weight: 72 kg

DRUGS (8)
  1. DULAGLUTIDE [Suspect]
     Active Substance: DULAGLUTIDE
     Indication: Diabetes mellitus
     Dosage: 1.5 MG, WEEKLY (1/W)
     Route: 058
     Dates: start: 20251014, end: 20251019
  2. CYBLEX M [Concomitant]
     Indication: Diabetes mellitus
     Dosage: 80 MG, BID
  3. ADVOG M [Concomitant]
     Indication: Diabetes mellitus
     Dosage: 0.2 MG, DAILY
  4. LINARES [Concomitant]
     Indication: Diabetes mellitus
     Dosage: 5 MG, DAILY
     Dates: start: 20251014
  5. LNBLOC [Concomitant]
     Indication: Blood pressure measurement
     Dosage: 5 MG, DAILY
  6. ATORSAVE [Concomitant]
     Indication: Blood cholesterol
     Dosage: 10 MG, DAILY
  7. EIDO FE [Concomitant]
     Indication: Product used for unknown indication
  8. TRIPLE A CAL [Concomitant]
     Indication: Product used for unknown indication

REACTIONS (4)
  - Blood glucose decreased [Not Recovered/Not Resolved]
  - Dysstasia [Not Recovered/Not Resolved]
  - Dizziness [Not Recovered/Not Resolved]
  - Fall [Not Recovered/Not Resolved]

NARRATIVE: CASE EVENT DATE: 20251021
